FAERS Safety Report 5216719-9 (Version None)
Quarter: 2007Q1

REPORT INFORMATION
  Report Type: 
  Country: None (occurrence: None)
  Receive Date: 20061130
  Receipt Date: 20060530
  Transmission Date: 20070707
  Serious: Yes (Hospitalization, Other)
  Sender: FDA-Public Use
  Company Number: US200603000330

PATIENT
  Age: 36 Year
  Sex: Female
  Weight: 114.3 kg

DRUGS (7)
  1. ZYPREXA [Suspect]
     Indication: DEPRESSION
     Dosage: SEE IMAGE
     Dates: start: 20010501, end: 20021201
  2. ZYPREXA [Suspect]
     Indication: DEPRESSION
     Dosage: SEE IMAGE
     Dates: start: 20030101, end: 20030101
  3. ZYPREXA [Suspect]
     Indication: DEPRESSION
     Dosage: SEE IMAGE
     Dates: start: 20030201, end: 20040601
  4. ZYPREXA [Suspect]
     Indication: DEPRESSION
     Dosage: SEE IMAGE
     Dates: start: 20050101, end: 20050401
  5. PROZAC [Concomitant]
  6. DIVALPROEX SEMISODIUM (VALPROATE SEMISODIUM) [Concomitant]
  7. LUVOX [Concomitant]

REACTIONS (8)
  - DIABETES MELLITUS NON-INSULIN-DEPENDENT [None]
  - DIABETIC KETOACIDOSIS [None]
  - DIABETIC NEUROPATHY [None]
  - HYPERGLYCAEMIA [None]
  - HYPERLIPIDAEMIA [None]
  - PANCREATITIS [None]
  - VISION BLURRED [None]
  - WEIGHT INCREASED [None]
